FAERS Safety Report 24726868 (Version 1)
Quarter: 2024Q4

REPORT INFORMATION
  Report Type: Spontaneous
  Country: IT (occurrence: IT)
  Receive Date: 20241212
  Receipt Date: 20241212
  Transmission Date: 20250114
  Serious: Yes (Life-Threatening)
  Sender: PFIZER
  Company Number: None

PATIENT
  Age: 89 Year
  Sex: Female
  Weight: 50 kg

DRUGS (3)
  1. CLINDAMYCIN HYDROCHLORIDE [Suspect]
     Active Substance: CLINDAMYCIN HYDROCHLORIDE
     Indication: Antibiotic prophylaxis
     Dosage: 600 MG
  2. PROPOFOL [Suspect]
     Active Substance: PROPOFOL
     Indication: General anaesthesia
     Dosage: 30 MG
     Dates: start: 20241203, end: 20241203
  3. KETAMINE HYDROCHLORIDE [Suspect]
     Active Substance: KETAMINE HYDROCHLORIDE
     Indication: General anaesthesia
     Dosage: 20 MG
     Dates: start: 20241203, end: 20241203

REACTIONS (3)
  - Tachycardia [Recovered/Resolved]
  - Hypotension [Recovered/Resolved]
  - Off label use [Unknown]

NARRATIVE: CASE EVENT DATE: 20241203
